FAERS Safety Report 8970422 (Version 1)
Quarter: 2012Q4

REPORT INFORMATION
  Report Type: 
  Country: US (occurrence: US)
  Receive Date: 20121218
  Receipt Date: 20121218
  Transmission Date: 20130627
  Serious: No
  Sender: FDA-Public Use
  Company Number: US-BRISTOL-MYERS SQUIBB COMPANY-16496143

PATIENT
  Sex: Male

DRUGS (5)
  1. ABILIFY [Suspect]
     Indication: BIPOLAR DISORDER
  2. ABILIFY [Suspect]
     Indication: OBSESSIVE-COMPULSIVE DISORDER
  3. ABILIFY [Suspect]
     Indication: DEPRESSION
  4. CELEXA [Concomitant]
  5. XANAX [Concomitant]

REACTIONS (4)
  - Restlessness [Unknown]
  - Feeling jittery [Unknown]
  - Insomnia [Unknown]
  - Diarrhoea [Unknown]
